FAERS Safety Report 9826987 (Version 1)
Quarter: 2014Q1

REPORT INFORMATION
  Report Type: Spontaneous
  Country: US (occurrence: US)
  Receive Date: 20140117
  Receipt Date: 20140117
  Transmission Date: 20141002
  Serious: No
  Sender: FDA-Public Use
  Company Number: US-GLAXOSMITHKLINE-A1023746A

PATIENT
  Sex: Female

DRUGS (3)
  1. PROMACTA [Suspect]
  2. RADIATION [Suspect]
     Dates: end: 2012
  3. CHEMOTHERAPY [Suspect]
     Dates: end: 2012

REACTIONS (1)
  - Musculoskeletal disorder [Unknown]
